FAERS Safety Report 15150972 (Version 4)
Quarter: 2020Q4

REPORT INFORMATION
  Report Type: Spontaneous
  Country: US (occurrence: US)
  Receive Date: 20180716
  Receipt Date: 20201013
  Transmission Date: 20210113
  Serious: Yes (Disabling)
  Sender: FDA-Public Use
  Company Number: US-SA-2018SA187922

PATIENT

DRUGS (2)
  1. LUMIZYME [Suspect]
     Active Substance: ALGLUCOSIDASE ALFA
     Indication: GLYCOGEN STORAGE DISEASE TYPE II
     Dosage: 2000 MG, QOW
     Route: 041
     Dates: start: 20180116
  2. LUMIZYME [Suspect]
     Active Substance: ALGLUCOSIDASE ALFA
     Dosage: 2050 MG, QOW
     Route: 042
     Dates: start: 201802

REACTIONS (11)
  - Fatigue [Unknown]
  - Drug specific antibody present [Unknown]
  - Product packaging quantity issue [Unknown]
  - Muscle spasms [Unknown]
  - Muscular weakness [Unknown]
  - Gait disturbance [Unknown]
  - Blood creatine phosphokinase increased [Unknown]
  - Impaired work ability [Unknown]
  - Fear of falling [Unknown]
  - Off label use [Unknown]
  - Dyspnoea [Unknown]
